FAERS Safety Report 9829144 (Version 2)
Quarter: 2014Q3

REPORT INFORMATION
  Report Type: Spontaneous
  Country: US (occurrence: US)
  Receive Date: 20140119
  Receipt Date: 20140804
  Transmission Date: 20150326
  Serious: Yes (Hospitalization)
  Sender: FDA-Public Use
  Company Number: US-009507513-1401USA004127

PATIENT
  Sex: Female

DRUGS (1)
  1. NUVARING [Suspect]
     Active Substance: ETHINYL ESTRADIOL\ETONOGESTREL
     Route: 067

REACTIONS (14)
  - Subclavian vein thrombosis [Unknown]
  - Migraine [Unknown]
  - Asthma [Unknown]
  - Bipolar disorder [Unknown]
  - Fungal infection [Unknown]
  - Benign neoplasm [Unknown]
  - Irritable bowel syndrome [Unknown]
  - Fibromyalgia [Unknown]
  - Endometriosis [Unknown]
  - Benign tumour excision [Unknown]
  - Gastrooesophageal reflux disease [Unknown]
  - Jugular vein thrombosis [Unknown]
  - Device expulsion [Unknown]
  - Maternal exposure before pregnancy [Recovered/Resolved]

NARRATIVE: CASE EVENT DATE: 200402
